FAERS Safety Report 19016512 (Version 1)
Quarter: 2021Q1

REPORT INFORMATION
  Report Type: Spontaneous
  Country: US (occurrence: US)
  Receive Date: 20210317
  Receipt Date: 20210317
  Transmission Date: 20210420
  Serious: No
  Sender: FDA-Public Use
  Company Number: US-GLOBAL BLOOD THERAPEUTICS INC-US-GBT-21-00411

PATIENT
  Sex: Female

DRUGS (2)
  1. OXBRYTA [Suspect]
     Active Substance: VOXELOTOR
     Indication: SICKLE CELL ANAEMIA WITH CRISIS
     Route: 048
     Dates: start: 20200428
  2. OXBRYTA [Suspect]
     Active Substance: VOXELOTOR
     Route: 048

REACTIONS (1)
  - Drug intolerance [Unknown]
